FAERS Safety Report 7797425-3 (Version None)
Quarter: 2011Q4

REPORT INFORMATION
  Report Type: 
  Country: None (occurrence: None)
  Receive Date: 20111005
  Receipt Date: 20110922
  Transmission Date: 20120403
  Serious: No
  Sender: FDA-Public Use
  Company Number: US-B.I. PHARMACEUTICALS,INC./RIDGEFIELD-2011-BP-20158BP

PATIENT

DRUGS (2)
  1. SPIRIVA [Suspect]
     Dosage: 18 MCG
  2. SPIRIVA [Suspect]
     Dosage: 36 MCG

REACTIONS (1)
  - DRUG INEFFECTIVE [None]
